FAERS Safety Report 22323005 (Version 3)
Quarter: 2024Q2

REPORT INFORMATION
  Report Type: Spontaneous
  Country: GB (occurrence: GB)
  Receive Date: 20230516
  Receipt Date: 20240503
  Transmission Date: 20240716
  Serious: Yes (Other)
  Sender: FDA-Public Use
  Company Number: GB-002147023-NVSC2020GB164277

PATIENT
  Age: 48 Year
  Sex: Male
  Weight: 68 kg

DRUGS (18)
  1. CYCLOPHOSPHAMIDE [Suspect]
     Active Substance: CYCLOPHOSPHAMIDE
     Indication: Chemotherapy
     Dosage: UNK
     Route: 065
     Dates: start: 20200515, end: 20200517
  2. MESNA [Suspect]
     Active Substance: MESNA
     Indication: Adjuvant therapy
     Dosage: UNK
     Route: 065
     Dates: start: 20200515, end: 20200517
  3. FLUDARABINE [Suspect]
     Active Substance: FLUDARABINE PHOSPHATE
     Indication: Chemotherapy
     Dosage: UNK
     Route: 065
     Dates: start: 20200515, end: 20200517
  4. ACYCLOVIR [Concomitant]
     Active Substance: ACYCLOVIR
     Indication: Antiviral prophylaxis
     Dosage: UNK
     Route: 065
     Dates: start: 20200513, end: 20200609
  5. ALLOPURINOL [Concomitant]
     Active Substance: ALLOPURINOL
     Indication: General physical condition
     Dosage: UNK
     Route: 065
     Dates: start: 20200512, end: 20200609
  6. CALCIUM CARBONATE [Concomitant]
     Active Substance: CALCIUM CARBONATE
     Indication: General physical condition
     Dosage: UNK
     Route: 065
     Dates: start: 20200518, end: 20200605
  7. CHLORHEXIDINE GLUCONATE [Concomitant]
     Active Substance: CHLORHEXIDINE GLUCONATE
     Indication: General physical condition
     Dosage: UNK
     Route: 065
     Dates: start: 20200513, end: 20200609
  8. COTRIMOXAZOLE [Concomitant]
     Active Substance: SULFAMETHOXAZOLE\TRIMETHOPRIM
     Indication: Antibiotic prophylaxis
     Dosage: UNK
     Route: 065
     Dates: start: 20200512, end: 20200608
  9. DOMPERIDONE [Concomitant]
     Active Substance: DOMPERIDONE
     Indication: General physical condition
     Dosage: UNK
     Route: 065
     Dates: start: 20200513, end: 20200617
  10. ENOXAPARIN [Concomitant]
     Active Substance: ENOXAPARIN
     Indication: Anticoagulant therapy
     Dosage: UNK
     Route: 065
     Dates: start: 20200511, end: 20200617
  11. FLUCONAZOLE [Concomitant]
     Active Substance: FLUCONAZOLE
     Indication: Antifungal prophylaxis
     Dosage: UNK
     Route: 065
     Dates: start: 20200513, end: 20200519
  12. OMEPRAZOLE [Concomitant]
     Active Substance: OMEPRAZOLE
     Indication: General physical condition
     Dosage: UNK
     Route: 065
     Dates: start: 20200513, end: 20200609
  13. ONDANSETRON [Concomitant]
     Active Substance: ONDANSETRON
     Indication: General physical condition
     Dosage: UNK
     Route: 065
     Dates: start: 20200513, end: 20200517
  14. ACETAMINOPHEN [Concomitant]
     Active Substance: ACETAMINOPHEN
     Indication: Pyrexia
     Dosage: UNK
     Route: 065
     Dates: start: 20200513, end: 20200513
  15. POSACONAZOLE [Concomitant]
     Active Substance: POSACONAZOLE
     Indication: Prophylaxis
     Dosage: UNK
     Route: 065
     Dates: start: 20200523, end: 20200609
  16. TOCILIZUMAB [Concomitant]
     Active Substance: TOCILIZUMAB
     Indication: Prophylaxis
     Dosage: UNK
     Route: 065
     Dates: start: 20200512, end: 20200516
  17. TOCILIZUMAB [Concomitant]
     Active Substance: TOCILIZUMAB
     Dosage: UNK
     Route: 065
  18. TOCILIZUMAB [Concomitant]
     Active Substance: TOCILIZUMAB
     Dosage: UNK
     Route: 065

REACTIONS (1)
  - Neutropenia [Recovered/Resolved]

NARRATIVE: CASE EVENT DATE: 20200528
